FAERS Safety Report 20837065 (Version 1)
Quarter: 2022Q2

REPORT INFORMATION
  Report Type: Spontaneous
  Country: US (occurrence: US)
  Receive Date: 20220517
  Receipt Date: 20220517
  Transmission Date: 20220721
  Serious: Yes (Other)
  Sender: FDA-Public Use
  Company Number: US-HORIZON THERAPEUTICS-HZN-2022-001688

PATIENT
  Sex: Male

DRUGS (1)
  1. TEPEZZA [Suspect]
     Active Substance: TEPROTUMUMAB-TRBW
     Indication: Product used for unknown indication
     Dosage: RECEIVED ALL 8 INFUSIONS OF TEPEZZA
     Route: 042

REACTIONS (2)
  - Deafness [Not Recovered/Not Resolved]
  - Ear discomfort [Not Recovered/Not Resolved]
